FAERS Safety Report 12114655 (Version 1)
Quarter: 2016Q1

REPORT INFORMATION
  Report Type: Spontaneous
  Country: US (occurrence: US)
  Receive Date: 20160225
  Receipt Date: 20160225
  Transmission Date: 20160526
  Serious: Yes (Other)
  Sender: FDA-Public Use
  Company Number: US-PFIZER INC-2015406278

PATIENT
  Age: 75 Year
  Sex: Female
  Weight: 113 kg

DRUGS (13)
  1. PRIMIDONE. [Concomitant]
     Active Substance: PRIMIDONE
     Indication: TREMOR
     Dosage: 250 MG, 2X/DAY
  2. CALCITROL [Concomitant]
     Active Substance: CALCITRIOL
     Indication: BLOOD CALCIUM
     Dosage: 17 UG, 1X/DAY, .5 MCG CAPLET TWO BY MOUTH
     Route: 048
  3. PROMETHAZINE [Concomitant]
     Active Substance: PROMETHAZINE\PROMETHAZINE HYDROCHLORIDE
     Indication: NAUSEA
     Dosage: 25 MG, 2X/DAY
  4. PRAVASTATIN SODIUM. [Concomitant]
     Active Substance: PRAVASTATIN SODIUM
     Indication: BLOOD CHOLESTEROL
     Dosage: 40 MG, 1X/DAY
  5. FLECAINIDE [Concomitant]
     Active Substance: FLECAINIDE
     Indication: HYPERTENSION
     Dosage: 100 MG, 2X/DAY
  6. DILTIZEM [Concomitant]
     Indication: CARDIAC DISORDER
     Dosage: 125 MG, 2X/DAY
  7. TRIMETHOPRIM. [Concomitant]
     Active Substance: TRIMETHOPRIM
     Indication: CYSTITIS
     Dosage: 100 MG, 1X/DAY
  8. REVATIO [Suspect]
     Active Substance: SILDENAFIL CITRATE
     Dosage: 20 MG, 3X/DAY
  9. LOSARTAN. [Concomitant]
     Active Substance: LOSARTAN
     Indication: CARDIAC DISORDER
     Dosage: 100 MG, 2X/DAY
  10. VITAMIN D2 [Concomitant]
     Active Substance: ERGOCALCIFEROL
     Indication: VITAMIN D DEFICIENCY
     Dosage: 1.25 MG, WEEKLY
  11. REVATIO [Suspect]
     Active Substance: SILDENAFIL CITRATE
     Indication: PULMONARY HYPERTENSION
     Dosage: 20 MG, 3X/DAY
     Route: 048
  12. WARFARIN [Concomitant]
     Active Substance: WARFARIN
     Indication: COAGULOPATHY
     Dosage: 2 MG, 1X/DAY, AT NIGHT
  13. FUROSEMIDE. [Concomitant]
     Active Substance: FUROSEMIDE
     Indication: DYSURIA
     Dosage: 40 MG, 2X/DAY

REACTIONS (2)
  - Tooth disorder [Unknown]
  - Tooth fracture [Unknown]

NARRATIVE: CASE EVENT DATE: 20151116
